FAERS Safety Report 8093714 (Version 3)
Quarter: 2013Q4

REPORT INFORMATION
  Report Type: Spontaneous
  Country: US (occurrence: US)
  Receive Date: 20110817
  Receipt Date: 20131217
  Transmission Date: 20140711
  Serious: No
  Sender: FDA-Public Use
  Company Number: US-GLAXOSMITHKLINE-A0930412A

PATIENT
  Sex: Female

DRUGS (1)
  1. VOTRIENT [Suspect]
     Indication: RENAL CANCER
     Dosage: 200MG TWICE PER DAY
     Route: 065

REACTIONS (4)
  - Diarrhoea [Unknown]
  - Nausea [Unknown]
  - Retching [Unknown]
  - Alopecia [Unknown]
